FAERS Safety Report 7594821-4 (Version None)
Quarter: 2011Q3

REPORT INFORMATION
  Report Type: 
  Country: None (occurrence: None)
  Receive Date: 20110707
  Receipt Date: 20110624
  Transmission Date: 20111222
  Serious: Yes (Hospitalization)
  Sender: FDA-Public Use
  Company Number: KR-ELI_LILLY_AND_COMPANY-KR201106007686

PATIENT
  Age: 58 Year
  Sex: Female

DRUGS (3)
  1. BYETTA [Suspect]
     Indication: TYPE 2 DIABETES MELLITUS
     Dosage: 5 UG, BID
     Route: 058
     Dates: start: 20110405
  2. CORTICOSTEROIDS [Concomitant]
     Indication: ARTHRALGIA
  3. ANALGESICS [Concomitant]
     Indication: ARTHRALGIA

REACTIONS (2)
  - ARTHRALGIA [None]
  - HYPERGLYCAEMIA [None]
